FAERS Safety Report 4679734-X (Version None)
Quarter: 2005Q2

REPORT INFORMATION
  Report Type: 
  Country: None (occurrence: None)
  Receive Date: 20050531
  Receipt Date: 20050514
  Transmission Date: 20051028
  Serious: Yes (Other)
  Sender: FDA-Public Use
  Company Number: 2005EU000788

PATIENT
  Age: 24 Year
  Sex: Female

DRUGS (4)
  1. PROGRAF [Suspect]
     Indication: NEPHROPATHY
     Dosage: SEE IMAGE
     Route: 048
     Dates: start: 19981001, end: 20010801
  2. PROGRAF [Suspect]
     Indication: NEPHROPATHY
     Dosage: SEE IMAGE
     Route: 048
     Dates: start: 20010801, end: 20020101
  3. PROGRAF [Suspect]
     Indication: NEPHROPATHY
     Dosage: SEE IMAGE
     Route: 048
     Dates: start: 20020101
  4. . [Concomitant]

REACTIONS (1)
  - RETINAL VEIN THROMBOSIS [None]
